FAERS Safety Report 9278212 (Version 1)
Quarter: 2013Q2

REPORT INFORMATION
  Report Type: Spontaneous
  Country: FR (occurrence: FR)
  Receive Date: 20130508
  Receipt Date: 20130508
  Transmission Date: 20140414
  Serious: Yes (Hospitalization)
  Sender: FDA-Public Use
  Company Number: FR-PFIZER INC-2013139421

PATIENT
  Age: 68 Year
  Sex: Female

DRUGS (8)
  1. LYRICA [Suspect]
     Dosage: 50 MG, 2X/DAY
     Route: 048
  2. COVERSYL [Suspect]
     Dosage: 2.5 MG, 1X/DAY
     Route: 048
     Dates: start: 20121127, end: 20121216
  3. VALIUM ROCHE [Suspect]
     Dosage: 5 MG, 2X/DAY
     Route: 048
  4. TERCIAN [Suspect]
     Dosage: 25 GTT, 1X/DAY
     Route: 048
  5. DIFFU K [Concomitant]
     Dosage: 1 DF, 3X/DAY
     Route: 048
  6. DAFALGAN [Concomitant]
     Dosage: 1 G, 2X/DAY
     Route: 048
  7. METEOSPASMYL [Concomitant]
     Dosage: 1 DF, 3X/DAY
     Route: 048
  8. NOCTAMIDE [Concomitant]

REACTIONS (4)
  - Hypotension [Unknown]
  - Fall [Unknown]
  - Joint injury [Unknown]
  - Muscular weakness [Unknown]
